FAERS Safety Report 8272742-1 (Version None)
Quarter: 2012Q2

REPORT INFORMATION
  Report Type: 
  Country: None (occurrence: None)
  Receive Date: 20120411
  Receipt Date: 20120327
  Transmission Date: 20120825
  Serious: Yes (Hospitalization, Other)
  Sender: FDA-Public Use
  Company Number: US-PAR PHARMACEUTICAL, INC-2012SCPR004297

PATIENT

DRUGS (1)
  1. OLANZAPINE [Suspect]
     Indication: PRODUCT USED FOR UNKNOWN INDICATION
     Dosage: UNK, UNKNOWN
     Route: 065
     Dates: start: 20111101

REACTIONS (4)
  - DISTURBANCE IN SOCIAL BEHAVIOUR [None]
  - REFUSAL OF TREATMENT BY PATIENT [None]
  - PARANOIA [None]
  - PSYCHOTIC DISORDER [None]
